FAERS Safety Report 16944594 (Version 3)
Quarter: 2025Q3

REPORT INFORMATION
  Report Type: Spontaneous
  Country: US (occurrence: US)
  Receive Date: 20191022
  Receipt Date: 20250929
  Transmission Date: 20251021
  Serious: Yes (Disabling, Other)
  Sender: ADVANZ PHARMA
  Company Number: US-ADVANZ PHARMA-201910001270

PATIENT

DRUGS (3)
  1. HYDROXYCHLOROQUINE [Suspect]
     Active Substance: HYDROXYCHLOROQUINE
     Indication: Rheumatoid arthritis
     Route: 065
  2. TAXOTERE [Suspect]
     Active Substance: DOCETAXEL
     Indication: Invasive ductal breast carcinoma
     Route: 065
  3. CYCLOPHOSPHAMIDE [Concomitant]
     Active Substance: CYCLOPHOSPHAMIDE

REACTIONS (7)
  - Blindness [Recovering/Resolving]
  - Cataract nuclear [Unknown]
  - Macular degeneration [Recovering/Resolving]
  - Vision blurred [Recovering/Resolving]
  - Macular oedema [Recovering/Resolving]
  - Retinal thickening [Recovering/Resolving]
  - Maculopathy [Recovering/Resolving]
